FAERS Safety Report 4766578-3 (Version None)
Quarter: 2005Q3

REPORT INFORMATION
  Report Type: 
  Country: None (occurrence: None)
  Receive Date: 20050908
  Receipt Date: 20050826
  Transmission Date: 20060218
  Serious: Yes (Other)
  Sender: FDA-Public Use
  Company Number: 2005120758

PATIENT
  Age: 69 Year
  Sex: Female
  Weight: 81.6475 kg

DRUGS (4)
  1. LIPITOR [Suspect]
     Indication: BLOOD CHOLESTEROL
     Dosage: 40 MG (40 MG, 1 IN 1 D)
  2. VERAPAMIL HYDROCHLORIDE [Suspect]
     Indication: BLOOD PRESSURE
  3. VALSARTAN [Concomitant]
  4. ACETYLSALICYLIC ACID SRT [Concomitant]

REACTIONS (5)
  - BLOOD PRESSURE ABNORMAL [None]
  - MUSCLE TIGHTNESS [None]
  - MUSCULAR WEAKNESS [None]
  - MYALGIA [None]
  - PERIPHERAL OCCLUSIVE DISEASE [None]
